FAERS Safety Report 19693639 (Version 1)
Quarter: 2021Q3

REPORT INFORMATION
  Report Type: Spontaneous
  Country: DE (occurrence: DE)
  Receive Date: 20210812
  Receipt Date: 20210812
  Transmission Date: 20211014
  Serious: Yes (Other)
  Sender: FDA-Public Use
  Company Number: DE-MYLANLABS-2021M1049084

PATIENT
  Age: 80 Year
  Sex: Female

DRUGS (1)
  1. DALMADORM [Suspect]
     Active Substance: FLURAZEPAM HYDROCHLORIDE
     Indication: PRODUCT USED FOR UNKNOWN INDICATION
     Dosage: HALF TAB; 2 TO 3  TIMES PER WEEK
     Route: 048

REACTIONS (2)
  - Drug abuse [Unknown]
  - Feeling cold [Unknown]
